FAERS Safety Report 5532453-X (Version None)
Quarter: 2007Q4

REPORT INFORMATION
  Report Type: 
  Country: None (occurrence: None)
  Receive Date: 20071203
  Receipt Date: 20071121
  Transmission Date: 20080405
  Serious: Yes (Other)
  Sender: FDA-Public Use
  Company Number: US-PFIZER INC-2007081939

PATIENT
  Sex: Male
  Weight: 37 kg

DRUGS (3)
  1. R-GENE 10 [Suspect]
     Indication: BODY HEIGHT BELOW NORMAL
     Route: 042
     Dates: start: 20070926, end: 20070927
  2. SINGULAIR [Concomitant]
     Indication: ASTHMA
     Route: 048
  3. L-DOPA [Concomitant]
     Indication: GROWTH HORMONE DEFICIENCY
     Route: 048

REACTIONS (4)
  - HEADACHE [None]
  - MUSCULOSKELETAL STIFFNESS [None]
  - MYALGIA [None]
  - VIRAL MYOCARDITIS [None]
